FAERS Safety Report 9328879 (Version 1)
Quarter: 2013Q2

REPORT INFORMATION
  Report Type: Spontaneous
  Country: PL (occurrence: PL)
  Receive Date: 20130604
  Receipt Date: 20130604
  Transmission Date: 20140414
  Serious: Yes (Disabling)
  Sender: FDA-Public Use
  Company Number: PL-BAXTER-2013BAX019991

PATIENT
  Age: 53 Year
  Sex: Female
  Weight: 50 kg

DRUGS (1)
  1. HOLOXAN [Suspect]
     Indication: PRODUCT USED FOR UNKNOWN INDICATION
     Route: 042
     Dates: start: 20130330, end: 20130331

REACTIONS (4)
  - Mental impairment [Unknown]
  - Disorientation [Unknown]
  - Psychomotor hyperactivity [Unknown]
  - Muscular weakness [Unknown]
